FAERS Safety Report 7987004-7 (Version None)
Quarter: 2011Q4

REPORT INFORMATION
  Report Type: 
  Country: None (occurrence: None)
  Receive Date: 20111216
  Receipt Date: 20110309
  Transmission Date: 20120403
  Serious: No
  Sender: FDA-Public Use
  Company Number: US-BRISTOL-MYERS SQUIBB COMPANY-15598519

PATIENT
  Age: 51 Year
  Sex: Female
  Weight: 95 kg

DRUGS (8)
  1. ABILIFY [Suspect]
     Indication: ANXIETY
     Dosage: 5MG SINCE FEB2011; DOSE INCREASED TO 10 MG, 2 WEEKS PRIOR TO TIME OF REPORT
     Dates: start: 20110201
  2. ABILIFY [Suspect]
     Indication: DEPRESSION
     Dosage: 5MG SINCE FEB2011; DOSE INCREASED TO 10 MG, 2 WEEKS PRIOR TO TIME OF REPORT
     Dates: start: 20110201
  3. OXYCODONE HCL AND ACETAMINOPHEN [Concomitant]
     Indication: PAIN
  4. NEURONTIN [Concomitant]
     Indication: NEURALGIA
  5. PROPRANOLOL [Concomitant]
     Indication: HYPERTENSION
  6. ZOLOFT [Concomitant]
     Dosage: EVERY MORNING
  7. MORPHINE [Concomitant]
     Indication: PAIN
  8. LORAZEPAM [Concomitant]
     Indication: ANXIETY

REACTIONS (3)
  - IRRITABILITY [None]
  - MALAISE [None]
  - WRONG TECHNIQUE IN DRUG USAGE PROCESS [None]
